FAERS Safety Report 4952094-2 (Version None)
Quarter: 2006Q1

REPORT INFORMATION
  Report Type: 
  Country: None (occurrence: None)
  Receive Date: 20060323
  Receipt Date: 20060315
  Transmission Date: 20060701
  Serious: Yes (Death, Hospitalization)
  Sender: FDA-Public Use
  Company Number: US-SANOFI-SYNTHELABO-A03200601438

PATIENT
  Sex: Female
  Weight: 52.15 kg

DRUGS (9)
  1. PLAVIX [Suspect]
     Indication: DRUG USE FOR UNKNOWN INDICATION
     Dosage: UNK
     Route: 048
  2. NEURONTIN [Concomitant]
     Route: 048
  3. ARICEPT [Concomitant]
     Route: 048
  4. ZOLOFT [Concomitant]
     Route: 048
  5. NAMENDIA [Concomitant]
     Route: 048
  6. ZYPREXA [Concomitant]
     Route: 048
  7. FUROSEMIDE [Concomitant]
     Route: 048
  8. LOTREL [Concomitant]
     Dosage: 10/20 MG QD
     Route: 048
  9. TOPROL-XL [Concomitant]
     Route: 048

REACTIONS (1)
  - RENAL FAILURE [None]
